FAERS Safety Report 12159511 (Version 2)
Quarter: 2016Q2

REPORT INFORMATION
  Report Type: Spontaneous
  Country: US (occurrence: US)
  Receive Date: 20160308
  Receipt Date: 20160418
  Transmission Date: 20160815
  Serious: Yes (Hospitalization, Other)
  Sender: FDA-Public Use
  Company Number: US-PFIZER INC-2016131369

PATIENT
  Age: 74 Year
  Sex: Male

DRUGS (4)
  1. ZETIA [Concomitant]
     Active Substance: EZETIMIBE
     Dosage: 10 MG, UNK
  2. LISINOPRIL. [Concomitant]
     Active Substance: LISINOPRIL
     Dosage: 40 MG, UNK
  3. HYDROCHLOROTHIAZIDE. [Concomitant]
     Active Substance: HYDROCHLOROTHIAZIDE
     Dosage: 12.5 MG, UNK
  4. IBUPROFEN. [Suspect]
     Active Substance: IBUPROFEN
     Indication: PAIN
     Dosage: 600 MG, 1X/DAY
     Dates: start: 20160211

REACTIONS (7)
  - Malaise [Unknown]
  - Irritable bowel syndrome [Recovered/Resolved]
  - Constipation [Recovered/Resolved]
  - Gastric perforation [Recovered/Resolved]
  - Drug ineffective [Recovered/Resolved]
  - Gastric haemorrhage [Recovered/Resolved]
  - Haematochezia [Recovered/Resolved]
